FAERS Safety Report 5237342-6 (Version None)
Quarter: 2007Q1

REPORT INFORMATION
  Report Type: 
  Country: None (occurrence: None)
  Receive Date: 20070213
  Receipt Date: 20070130
  Transmission Date: 20070707
  Serious: Yes (Hospitalization)
  Sender: FDA-Public Use
  Company Number: BE-ELI_LILLY_AND_COMPANY-BE200612003770

PATIENT
  Age: 55 Year
  Sex: Female
  Weight: 77 kg

DRUGS (6)
  1. CYMBALTA [Suspect]
     Dosage: 60 MG, DAILY (1/D)
     Route: 048
     Dates: start: 20060630, end: 20060913
  2. LOSEC [Concomitant]
     Dosage: 20 MG, DAILY (1/D)
     Route: 048
  3. MIACALCIC                               /UNK/ [Concomitant]
     Indication: OSTEOPOROSIS PROPHYLAXIS
     Dosage: 50 IU, DAILY (1/D)
  4. TRAZOLAN - SLOW RELEASE [Concomitant]
     Indication: DEPRESSION
     Dosage: 150 MG, DAILY (1/D)
     Route: 048
  5. AKTON [Concomitant]
     Indication: ANXIETY
     Dosage: 2 MG, DAILY (1/D)
     Route: 048
  6. TEMESTA                                 /NET/ [Concomitant]
     Indication: ANXIETY
     Dosage: 2.5 MG, DAILY (1/D)
     Route: 048

REACTIONS (1)
  - HEPATITIS [None]
